FAERS Safety Report 9373814 (Version 2)
Quarter: 2013Q4

REPORT INFORMATION
  Report Type: Spontaneous
  Country: GB (occurrence: GB)
  Receive Date: 20130628
  Receipt Date: 20131107
  Transmission Date: 20140711
  Serious: Yes (Other)
  Sender: FDA-Public Use
  Company Number: PHHY2013GB064039

PATIENT
  Age: 38 Year
  Sex: Female
  Weight: 67.2 kg

DRUGS (2)
  1. CITALOPRAM [Suspect]
     Indication: ANXIETY
     Dosage: 10 MG, UNK
     Route: 048
     Dates: start: 20130412
  2. CITALOPRAM [Suspect]
     Dosage: 20 MG, UNK
     Route: 048
     Dates: start: 20130412

REACTIONS (2)
  - Trismus [Recovered/Resolved]
  - Bruxism [Unknown]
